FAERS Safety Report 8415347-1 (Version None)
Quarter: 2012Q2

REPORT INFORMATION
  Report Type: 
  Country: None (occurrence: None)
  Receive Date: 20120606
  Receipt Date: 20120525
  Transmission Date: 20120825
  Serious: Yes (Other)
  Sender: FDA-Public Use
  Company Number: PHHY2011BR098758

PATIENT
  Sex: Female
  Weight: 67 kg

DRUGS (4)
  1. SANDOSTATIN LAR [Suspect]
     Indication: PITUITARY TUMOUR
     Dosage: 1 DF, APPLICATION EVERY 2 MONTHS
     Dates: start: 20060101
  2. LEVOTHYROXINE SODIUM [Concomitant]
     Dosage: 175 MG, A DAY (ON SUNDAY)
  3. SANDOSTATIN LAR [Suspect]
     Dosage: 1 DF, 1 APPLICATION A MONTH
  4. LEVOTHYROXINE SODIUM [Concomitant]
     Indication: HYPOTHYROIDISM
     Dosage: 150 MCG A DAY (FROM MONDAY UNTIL SATURDAY)
     Route: 048
     Dates: start: 20050101

REACTIONS (19)
  - MEMORY IMPAIRMENT [None]
  - THYROID CANCER [None]
  - METASTASIS [None]
  - MICTURITION DISORDER [None]
  - EYE SWELLING [None]
  - SWELLING FACE [None]
  - HYPOTHYROIDISM [None]
  - INSULIN-LIKE GROWTH FACTOR INCREASED [None]
  - WEIGHT DECREASED [None]
  - ARTHRALGIA [None]
  - PAIN [None]
  - VOMITING [None]
  - METASTASES TO LUNG [None]
  - SWOLLEN TONGUE [None]
  - VISUAL IMPAIRMENT [None]
  - BLOOD GROWTH HORMONE ABNORMAL [None]
  - NEOPLASM RECURRENCE [None]
  - OEDEMA PERIPHERAL [None]
  - WEIGHT INCREASED [None]
